FAERS Safety Report 6889928-0 (Version None)
Quarter: 2010Q3

REPORT INFORMATION
  Report Type: 
  Country: None (occurrence: None)
  Receive Date: 20100730
  Receipt Date: 20080603
  Transmission Date: 20110219
  Serious: Yes (Other)
  Sender: FDA-Public Use
  Company Number: US-PFIZER INC-2008047156

PATIENT
  Sex: Female
  Weight: 90.7 kg

DRUGS (11)
  1. LIPITOR [Suspect]
     Indication: BLOOD CHOLESTEROL
     Dates: start: 20030101, end: 20040101
  2. BAYCOL [Concomitant]
     Dates: start: 20040101, end: 20050101
  3. PRAVACHOL [Concomitant]
     Dates: start: 20050101, end: 20050101
  4. ACTOS [Concomitant]
     Indication: TYPE 2 DIABETES MELLITUS
  5. CELEBREX [Concomitant]
     Indication: ARTHRITIS
  6. PREVACID [Concomitant]
  7. LISINOPRIL [Concomitant]
     Indication: HYPERTENSION
  8. LUMIGAN [Concomitant]
     Indication: GLAUCOMA
     Dosage: BEDTIME
     Route: 031
  9. TIMOPTIC [Concomitant]
     Indication: GLAUCOMA
     Route: 031
  10. ZOCOR [Concomitant]
  11. MEVACOR [Concomitant]

REACTIONS (1)
  - MUSCULAR WEAKNESS [None]
